FAERS Safety Report 4491841-3 (Version None)
Quarter: 2004Q4

REPORT INFORMATION
  Report Type: 
  Country: None (occurrence: None)
  Receive Date: 20041028
  Receipt Date: 20041028
  Transmission Date: 20050328
  Serious: Yes (Death)
  Sender: FDA-Public Use
  Company Number: None

PATIENT
  Age: 73 Year
  Sex: Male
  Weight: 86 kg

DRUGS (10)
  1. ENOXAPARIN [Suspect]
     Indication: DEEP VENOUS THROMBOSIS PROPHYLAXIS
     Dosage: 40 MG QD SUBCUTANEOUS
     Route: 058
     Dates: start: 20040630, end: 20040719
  2. ERYTHROMYCIN ETHYLSUCCINATE [Concomitant]
  3. EPOETIN ALFA [Concomitant]
  4. GUAIFENESIN LA [Concomitant]
  5. HYDROMORPHINE [Concomitant]
  6. METOCLOPRAMIDE [Concomitant]
  7. OXYCODONE AND ACETAMINOPHEN [Concomitant]
  8. PROETHAZINE [Concomitant]
  9. ENTERAL FEEDINGS [Concomitant]
  10. NGT [Concomitant]

REACTIONS (13)
  - ABDOMINAL PAIN [None]
  - ACIDOSIS [None]
  - ACUTE RESPIRATORY FAILURE [None]
  - ALCOHOL WITHDRAWAL SYNDROME [None]
  - CARDIAC FAILURE CONGESTIVE [None]
  - DEHYDRATION [None]
  - HYPERTENSION [None]
  - MALNUTRITION [None]
  - PNEUMONIA [None]
  - RENAL FAILURE ACUTE [None]
  - RETROPERITONEAL HAEMATOMA [None]
  - SEPSIS [None]
  - VOLVULUS OF BOWEL [None]
